FAERS Safety Report 25749441 (Version 2)
Quarter: 2025Q4

REPORT INFORMATION
  Report Type: Spontaneous
  Country: EU (occurrence: EU)
  Receive Date: 20250902
  Receipt Date: 20251014
  Transmission Date: 20260117
  Serious: No
  Sender: IPSEN BIOPHARMACEUTICALS, INC.
  Company Number: EU-IPSEN Group, Research and Development-2025-21250

PATIENT
  Age: 14 Year
  Sex: Male
  Weight: 95 kg

DRUGS (2)
  1. BYLVAY [Suspect]
     Active Substance: ODEVIXIBAT
     Indication: Product used for unknown indication
     Dosage: 3 EVERY 12 HOURS
     Dates: start: 20250709, end: 20250923
  2. BYLVAY [Suspect]
     Active Substance: ODEVIXIBAT

REACTIONS (1)
  - Blood bilirubin increased [Recovered/Resolved]
